FAERS Safety Report 13861237 (Version 1)
Quarter: 2017Q3

REPORT INFORMATION
  Report Type: Spontaneous
  Country: IT (occurrence: IT)
  Receive Date: 20170811
  Receipt Date: 20170811
  Transmission Date: 20171127
  Serious: Yes (Other)
  Sender: FDA-Public Use
  Company Number: IT-BAYER-2017-148815

PATIENT
  Age: 67 Year
  Sex: Male

DRUGS (10)
  1. BRILIQUE [Suspect]
     Active Substance: TICAGRELOR
     Dosage: 180 MG, QD
     Route: 048
  2. KANRENOL [Suspect]
     Active Substance: CANRENOATE POTASSIUM
  3. BISOPROLOL [Suspect]
     Active Substance: BISOPROLOL
  4. TRIATEC [Suspect]
     Active Substance: RAMIPRIL
     Route: 048
  5. TORVAST [Suspect]
     Active Substance: ATORVASTATIN
  6. ALLOPURINOL. [Suspect]
     Active Substance: ALLOPURINOL
  7. CARDIOASPIRIN 100 MG [Suspect]
     Active Substance: ASPIRIN
  8. FUROSEMIDE. [Suspect]
     Active Substance: FUROSEMIDE
  9. AMIODARONE [Suspect]
     Active Substance: AMIODARONE
     Dosage: 5 DF, WEEK
  10. LANSOPRAZOLE. [Suspect]
     Active Substance: LANSOPRAZOLE

REACTIONS (6)
  - Ventricular extrasystoles [Unknown]
  - Myocardial infarction [Unknown]
  - Pulmonary oedema [Unknown]
  - Supraventricular extrasystoles [Unknown]
  - Bradycardia [Unknown]
  - Bundle branch block [Unknown]

NARRATIVE: CASE EVENT DATE: 2010
